FAERS Safety Report 7998434 (Version 7)
Quarter: 2013Q4

REPORT INFORMATION
  Report Type: Report from Study
  Country: DE (occurrence: DE)
  Receive Date: 20110620
  Receipt Date: 20131219
  Transmission Date: 20140711
  Serious: Yes (Death, Hospitalization)
  Sender: FDA-Public Use
  Company Number: DE-UCBSA-035524

PATIENT
  Sex: Female

DRUGS (7)
  1. CERTOLIZUMAB PEGOL [Suspect]
     Indication: RHEUMATOID ARTHRITIS
     Route: 058
     Dates: start: 20110110, end: 2011
  2. METHOTREXATE [Concomitant]
     Indication: RHEUMATOID ARTHRITIS
     Route: 058
     Dates: start: 19981027, end: 20110412
  3. METHOTREXATE [Concomitant]
     Indication: RHEUMATOID ARTHRITIS
     Route: 058
     Dates: start: 20110412, end: 20110425
  4. FOLCUR [Concomitant]
     Route: 048
     Dates: start: 200810
  5. METOPROLOL [Concomitant]
     Indication: HYPERTENSION
     Dosage: DOSE:95
     Dates: end: 20110430
  6. ENALAPRIL [Concomitant]
     Indication: HYPERTENSION
     Dosage: DOSE: 10
     Dates: end: 20110430
  7. METFORMIN [Concomitant]
     Indication: DIABETES MELLITUS
     Dosage: DOSE: 1000MG
     Dates: end: 20110430

REACTIONS (2)
  - Sepsis [Fatal]
  - Pneumonia pneumococcal [Not Recovered/Not Resolved]
